FAERS Safety Report 9956675 (Version 1)
Quarter: 2014Q1

REPORT INFORMATION
  Report Type: Report from Study
  Country: US (occurrence: US)
  Receive Date: 20140304
  Receipt Date: 20140304
  Transmission Date: 20141002
  Serious: No
  Sender: FDA-Public Use
  Company Number: US-ABBVIE-13P-163-1094847-00

PATIENT
  Age: 48 Year
  Sex: Female
  Weight: 75.36 kg

DRUGS (5)
  1. HUMIRA [Suspect]
     Indication: PSORIASIS
     Route: 058
     Dates: start: 201302, end: 201302
  2. HUMIRA [Suspect]
     Route: 058
     Dates: start: 201302, end: 201304
  3. XANAX [Concomitant]
     Indication: ANXIETY
  4. HYDROCODONE [Concomitant]
     Indication: PAIN
  5. IBUPROFEN [Concomitant]
     Indication: PAIN

REACTIONS (1)
  - Psoriasis [Not Recovered/Not Resolved]
